FAERS Safety Report 8904783 (Version 2)
Quarter: 2013Q1

REPORT INFORMATION
  Report Type: Report from Study
  Country: BE (occurrence: BE)
  Receive Date: 20121113
  Receipt Date: 20130109
  Transmission Date: 20140127
  Serious: Yes (Hospitalization)
  Sender: FDA-Public Use
  Company Number: BE-BIOGENIDEC-2012BI052043

PATIENT
  Age: 55 Year
  Sex: Male

DRUGS (4)
  1. TYSABRI [Suspect]
     Indication: MULTIPLE SCLEROSIS
     Route: 042
     Dates: start: 20100720
  2. OMEPRAZOL [Concomitant]
  3. SIPRALEXA [Concomitant]
  4. TOVIAZ [Concomitant]

REACTIONS (1)
  - Appendicitis perforated [Recovered/Resolved]
